FAERS Safety Report 16834850 (Version 2)
Quarter: 2019Q3

REPORT INFORMATION
  Report Type: Spontaneous
  Country: US (occurrence: US)
  Receive Date: 20190920
  Receipt Date: 20190924
  Transmission Date: 20191005
  Serious: No
  Sender: FDA-Public Use
  Company Number: US-SUNOVION-2019SUN003831

PATIENT
  Age: 57 Year
  Sex: Female

DRUGS (3)
  1. OXYGEN. [Concomitant]
     Active Substance: OXYGEN
  2. PREDNISONE. [Concomitant]
     Active Substance: PREDNISONE
     Dosage: UNK
     Route: 065
  3. APTIOM [Suspect]
     Active Substance: ESLICARBAZEPINE ACETATE
     Dosage: 400 MG, QD
     Route: 048

REACTIONS (16)
  - Lethargy [Unknown]
  - Blood chloride decreased [Unknown]
  - Dyspnoea [Unknown]
  - Headache [Unknown]
  - Nausea [Unknown]
  - Aspartate aminotransferase increased [Unknown]
  - Blood sodium decreased [Unknown]
  - Feeling abnormal [Unknown]
  - Confusional state [Unknown]
  - Blood urea nitrogen/creatinine ratio increased [Unknown]
  - Tinnitus [Unknown]
  - Dysuria [Unknown]
  - Dizziness [Unknown]
  - Disturbance in attention [Unknown]
  - Blood urea increased [Unknown]
  - Weight increased [Unknown]
